FAERS Safety Report 15060756 (Version 4)
Quarter: 2019Q2

REPORT INFORMATION
  Report Type: Report from Study
  Country: JP (occurrence: JP)
  Receive Date: 20180625
  Receipt Date: 20190429
  Transmission Date: 20190711
  Serious: Yes (Hospitalization, Other)
  Sender: FDA-Public Use
  Company Number: JP-JNJFOC-20180630199

PATIENT
  Age: 34 Year
  Sex: Male
  Weight: 84 kg

DRUGS (26)
  1. STELARA [Suspect]
     Active Substance: USTEKINUMAB
     Indication: CROHN^S DISEASE
     Dosage: 45 MG
     Route: 058
     Dates: start: 20180725, end: 20180725
  2. STELARA [Suspect]
     Active Substance: USTEKINUMAB
     Indication: CROHN^S DISEASE
     Dosage: 45 MG
     Route: 058
     Dates: start: 20180919, end: 20180919
  3. PRANLUKAST [Concomitant]
     Active Substance: PRANLUKAST
     Route: 048
  4. VALACICLOVIR [Concomitant]
     Active Substance: VALACYCLOVIR HYDROCHLORIDE
     Indication: VARICELLA
     Route: 048
  5. CIPROFLOXACIN. [Concomitant]
     Active Substance: CIPROFLOXACIN
     Route: 048
  6. PA [Concomitant]
     Active Substance: ACETAMINOPHEN\CAFFEINE\PROMETHAZINE\SALICYLAMIDE
     Route: 048
  7. GASTROM [Concomitant]
     Active Substance: ECABET SODIUM
     Indication: GASTROENTERITIS
     Route: 048
  8. CARBOCISTEINE [Concomitant]
     Active Substance: CARBOCYSTEINE
     Route: 048
  9. NEXIUM [Concomitant]
     Active Substance: ESOMEPRAZOLE MAGNESIUM
     Route: 048
  10. TAKECAB [Concomitant]
     Active Substance: VONOPRAZAN FUMURATE
     Route: 048
  11. CELECOX [Concomitant]
     Active Substance: CELECOXIB
     Route: 048
  12. MEDICON [Concomitant]
     Active Substance: DEXTROMETHORPHAN HYDROBROMIDE
     Route: 048
  13. MECOBALAMIN [Concomitant]
     Active Substance: METHYLCOBALAMIN
     Route: 048
  14. FEBURIC [Concomitant]
     Active Substance: FEBUXOSTAT
     Route: 048
  15. AZUNOL [SODIUM GUALENATE] [Concomitant]
     Active Substance: SODIUM GUALENATE
     Route: 061
  16. STELARA [Suspect]
     Active Substance: USTEKINUMAB
     Indication: CROHN^S DISEASE
     Dosage: 45 MG
     Route: 058
     Dates: start: 20180411, end: 20180411
  17. AZANIN [Concomitant]
     Active Substance: AZATHIOPRINE
     Indication: CROHN^S DISEASE
     Route: 048
  18. PENTASA [Concomitant]
     Active Substance: MESALAMINE
     Indication: CROHN^S DISEASE
     Route: 048
     Dates: start: 20190120
  19. ALLOPURINOL. [Concomitant]
     Active Substance: ALLOPURINOL
     Indication: GOUT
     Route: 048
  20. STELARA [Suspect]
     Active Substance: USTEKINUMAB
     Indication: CROHN^S DISEASE
     Dosage: 130 MG
     Route: 058
     Dates: start: 20180221, end: 20180221
  21. STELARA [Suspect]
     Active Substance: USTEKINUMAB
     Indication: CROHN^S DISEASE
     Dosage: 45 MG
     Route: 058
     Dates: start: 20181114, end: 20181114
  22. STELARA [Suspect]
     Active Substance: USTEKINUMAB
     Indication: CROHN^S DISEASE
     Dosage: 45 MG
     Route: 058
     Dates: start: 20190109, end: 20190109
  23. CALONAL [Concomitant]
     Active Substance: ACETAMINOPHEN
     Route: 048
  24. STELARA [Suspect]
     Active Substance: USTEKINUMAB
     Indication: CROHN^S DISEASE
     Dosage: 45 MG
     Route: 058
     Dates: start: 20180530, end: 20180530
  25. GENTAMICIN SULFATE. [Concomitant]
     Active Substance: GENTAMICIN SULFATE
     Indication: ANAL ABSCESS
     Route: 061
  26. STELARA [Suspect]
     Active Substance: USTEKINUMAB
     Indication: CROHN^S DISEASE
     Dosage: 45 MG
     Route: 058
     Dates: start: 20190308

REACTIONS (9)
  - Varicella [Recovering/Resolving]
  - Upper respiratory tract inflammation [Recovered/Resolved]
  - Gastroenteritis [Not Recovered/Not Resolved]
  - Intestinal obstruction [Recovering/Resolving]
  - Anastomotic stenosis [Recovering/Resolving]
  - Anal fistula [Not Recovered/Not Resolved]
  - Ureterolithiasis [Recovered/Resolved]
  - Gout [Recovered/Resolved]
  - Anal abscess [Not Recovered/Not Resolved]

NARRATIVE: CASE EVENT DATE: 20180323
